FAERS Safety Report 10927875 (Version 1)
Quarter: 2015Q1

REPORT INFORMATION
  Report Type: Spontaneous
  Country: US (occurrence: US)
  Receive Date: 20150319
  Receipt Date: 20150319
  Transmission Date: 20150721
  Serious: Yes (Death, Other)
  Sender: FDA-Public Use
  Company Number: US-SUN PHARMACEUTICAL INDUSTRIES LTD-BCTM20120067

PATIENT

DRUGS (1)
  1. BACTRIM DS [Suspect]
     Active Substance: SULFAMETHOXAZOLE\TRIMETHOPRIM
     Indication: RHINITIS
     Dosage: 1 DF, BID
     Route: 048
     Dates: start: 201209, end: 201209

REACTIONS (7)
  - Hyperthyroidism [Unknown]
  - Weight decreased [Unknown]
  - Tri-iodothyronine increased [Unknown]
  - Blood thyroid stimulating hormone decreased [Unknown]
  - Aspartate aminotransferase increased [Unknown]
  - Alanine aminotransferase increased [Unknown]
  - Blood iron decreased [Unknown]

NARRATIVE: CASE EVENT DATE: 201209
